FAERS Safety Report 8297373 (Version 3)
Quarter: 2013Q4

REPORT INFORMATION
  Report Type: Spontaneous
  Country: US (occurrence: US)
  Receive Date: 20111216
  Receipt Date: 20131206
  Transmission Date: 20140711
  Serious: Yes (Life-Threatening, Hospitalization, Other)
  Sender: FDA-Public Use
  Company Number: US-ASTRAZENECA-2010SE52583

PATIENT
  Age: 61 Year
  Sex: Female
  Weight: 149.7 kg

DRUGS (15)
  1. NEXIUM [Suspect]
     Indication: GASTROOESOPHAGEAL REFLUX DISEASE
     Route: 048
     Dates: start: 2008, end: 201311
  2. PRILOSEC [Suspect]
     Route: 048
  3. ZANTAC [Concomitant]
  4. PREVACID [Concomitant]
  5. SINGULAIR [Concomitant]
     Indication: ASTHMA
  6. SINGULAIR [Concomitant]
     Indication: CHRONIC OBSTRUCTIVE PULMONARY DISEASE
  7. ALBUTEROL [Concomitant]
  8. SPIREVA [Concomitant]
     Route: 055
  9. ZOLOFT [Concomitant]
     Indication: STRESS
  10. PRAVASTATIN [Concomitant]
     Indication: BLOOD CHOLESTEROL ABNORMAL
  11. COUMADIN [Concomitant]
     Indication: DEEP VEIN THROMBOSIS
  12. ZANAFLEX [Concomitant]
     Indication: SURGERY
     Dosage: TID
     Dates: start: 2008
  13. SPIRONOLACGTONE [Concomitant]
     Indication: DIURETIC THERAPY
  14. HYDROCODONE [Concomitant]
     Indication: BACK PAIN
     Dosage: 7.5-500MG
  15. SHOT [Concomitant]
     Indication: PAIN

REACTIONS (19)
  - Apparent death [Unknown]
  - Septic shock [Recovered/Resolved]
  - Anuria [Recovered/Resolved]
  - Abscess [Unknown]
  - Hernia [Unknown]
  - Oedema [Unknown]
  - Oesophageal disorder [Unknown]
  - Regurgitation [Unknown]
  - General physical health deterioration [Unknown]
  - Throat irritation [Not Recovered/Not Resolved]
  - Dysphonia [Not Recovered/Not Resolved]
  - Memory impairment [Not Recovered/Not Resolved]
  - Bronchitis [Unknown]
  - Back pain [Unknown]
  - Abdominal discomfort [Unknown]
  - Laryngeal pain [Unknown]
  - Gastrooesophageal reflux disease [Unknown]
  - Intentional drug misuse [Not Recovered/Not Resolved]
  - Drug ineffective [Unknown]
